FAERS Safety Report 5469974-4 (Version None)
Quarter: 2007Q3

REPORT INFORMATION
  Report Type: 
  Country: None (occurrence: None)
  Receive Date: 20070927
  Receipt Date: 20070914
  Transmission Date: 20080115
  Serious: Yes (Hospitalization)
  Sender: FDA-Public Use
  Company Number: AT-ELI_LILLY_AND_COMPANY-US_0408104701

PATIENT
  Age: 55 Year
  Sex: Female

DRUGS (1)
  1. FLUOXETINE HYDROCHLORIDE [Suspect]
     Indication: DEPRESSION
     Dosage: 20 MG, DAILY (1/D)
     Route: 048

REACTIONS (6)
  - CHILLS [None]
  - CHOLESTASIS [None]
  - HEPATITIS CHOLESTATIC [None]
  - PLATELET COUNT DECREASED [None]
  - SLEEP DISORDER [None]
  - SUICIDAL IDEATION [None]
